FAERS Safety Report 7019549-0 (Version None)
Quarter: 2010Q3

REPORT INFORMATION
  Report Type: 
  Country: None (occurrence: None)
  Receive Date: 20100923
  Receipt Date: 20100908
  Transmission Date: 20110219
  Serious: Yes (Other)
  Sender: FDA-Public Use
  Company Number: US-DEXPHARM-20101482

PATIENT
  Sex: Female
  Weight: 86.17 kg

DRUGS (4)
  1. OMEPRAZOLE [Suspect]
     Indication: GASTROOESOPHAGEAL REFLUX DISEASE
     Dosage: 20 MG OCNE A DAY, ORAL
     Route: 048
     Dates: start: 20100831, end: 20100907
  2. LISINOPRIL AND HYDROCHLOROTHIAZIDE [Concomitant]
  3. PROGESTERONE [Concomitant]
  4. ESTRADIOL [Concomitant]

REACTIONS (4)
  - DYSPHAGIA [None]
  - HYPOAESTHESIA ORAL [None]
  - LIP SWELLING [None]
  - SWOLLEN TONGUE [None]
